FAERS Safety Report 15562281 (Version 1)
Quarter: 2018Q4

REPORT INFORMATION
  Report Type: Spontaneous
  Country: CA (occurrence: CA)
  Receive Date: 20181029
  Receipt Date: 20181029
  Transmission Date: 20190205
  Serious: Yes (Other)
  Sender: FDA-Public Use
  Company Number: CA-PFIZER INC-2018430831

PATIENT
  Sex: Male

DRUGS (2)
  1. CYTARABINE. [Suspect]
     Active Substance: CYTARABINE
  2. IDARUBICIN [Suspect]
     Active Substance: IDARUBICIN

REACTIONS (2)
  - Leukaemia cutis [Unknown]
  - Neoplasm progression [Unknown]
